FAERS Safety Report 23948923 (Version 2)
Quarter: 2024Q2

REPORT INFORMATION
  Report Type: Spontaneous
  Country: ES (occurrence: ES)
  Receive Date: 20240607
  Receipt Date: 20240615
  Transmission Date: 20240716
  Serious: Yes (Death, Hospitalization, Other)
  Sender: FDA-Public Use
  Company Number: ES-ROCHE-2952685

PATIENT
  Age: 78 Year
  Sex: Male
  Weight: 68 kg

DRUGS (27)
  1. CARBOPLATIN [Suspect]
     Active Substance: CARBOPLATIN
     Indication: Non-small cell lung cancer metastatic
     Dosage: 444.44 MILLIGRAM, START DATE OF MOST RECENT DOSE OF STUDY DRUG PRIOR TO AE: 18/AUG/2021
     Route: 042
  2. CARBOPLATIN [Suspect]
     Active Substance: CARBOPLATIN
     Dosage: 376.47 MILLIGRAM
     Route: 042
     Dates: start: 20210614
  3. PEMETREXED [Suspect]
     Active Substance: PEMETREXED
     Indication: Non-small cell lung cancer metastatic
     Dosage: 875 MILLIGRAM, 3 WEEK, START DATE OF MOST RECENT DOSE OF STUDY DRUG PRIOR TO AE 20-OCT-2021
     Route: 042
  4. PEMETREXED [Suspect]
     Active Substance: PEMETREXED
     Dosage: 890 MILLIGRAM, 3 WEEK
     Route: 042
     Dates: start: 20210614
  5. PEMBROLIZUMAB [Suspect]
     Active Substance: PEMBROLIZUMAB
     Indication: Non-small cell lung cancer metastatic
     Dosage: UNK
     Route: 065
  6. PEMBROLIZUMAB [Suspect]
     Active Substance: PEMBROLIZUMAB
     Dosage: 200 MILLILITER, DATE OF MOST RECENT DOSE OF STUDY DRUG PRIOR TO AE AND SAE ONSET :20/OCT/2021
     Route: 042
     Dates: start: 20210614
  7. ATORVASTATIN [Concomitant]
     Active Substance: ATORVASTATIN
     Indication: Hypercholesterolaemia
     Dosage: 20 MILLIGRAM, ONCE A DAY
     Route: 065
     Dates: start: 20211104, end: 20211114
  8. ASPIRIN [Concomitant]
     Active Substance: ASPIRIN
     Indication: Product used for unknown indication
     Dosage: 100 MILLIGRAM, ONCE A DAY
     Route: 065
     Dates: start: 2017
  9. CIANOCOBALAMINA [Concomitant]
     Indication: Anaemia prophylaxis
     Dosage: 1 MILLIGRAM, ONCE A DAY
     Route: 065
     Dates: start: 20211117, end: 20211117
  10. CHLORPROMAZINE [Concomitant]
     Active Substance: CHLORPROMAZINE
     Indication: Prophylaxis
     Dosage: 25 MILLIGRAM, ONCE A DAY
     Route: 065
     Dates: start: 20211120, end: 20211130
  11. FUROSEMIDE [Concomitant]
     Active Substance: FUROSEMIDE
     Indication: Prophylaxis
     Dosage: 20 MILLIGRAM
     Route: 065
     Dates: start: 20211114, end: 20211125
  12. FOLIC ACID [Concomitant]
     Active Substance: FOLIC ACID
     Indication: Product used for unknown indication
     Dosage: 400 MICROGRAM, ONCE A DAY
     Route: 065
     Dates: start: 20210511
  13. INSULIN NOS [Concomitant]
     Active Substance: INSULIN NOS
     Indication: Diabetes mellitus
     Dosage: 50 INTERNATIONAL UNIT, ONCE A DAY
     Route: 065
     Dates: start: 20211107, end: 20211114
  14. INSULIN GLARGINE [Concomitant]
     Active Substance: INSULIN GLARGINE
     Indication: Diabetes mellitus
     Dosage: 300 INTERNATIONAL UNIT, ONCE A DAY
     Route: 065
     Dates: start: 2019
  15. LORAZEPAM [Concomitant]
     Active Substance: LORAZEPAM
     Indication: Prophylaxis
     Dosage: 1 MILLIGRAM
     Route: 065
     Dates: start: 20211104, end: 20211114
  16. LINAGLIPTIN [Concomitant]
     Active Substance: LINAGLIPTIN
     Indication: Diabetes mellitus
     Dosage: 5 MILLIGRAM, ONCE A DAY
     Route: 065
     Dates: start: 2012
  17. NOVORAPID [Concomitant]
     Active Substance: INSULIN ASPART
     Indication: Diabetes mellitus
     Dosage: 1 INTERNATIONAL UNIT, ONCE A DAY
     Route: 065
     Dates: start: 20211104, end: 20211130
  18. OMEPRAZOLE [Concomitant]
     Active Substance: DONEPEZIL HYDROCHLORIDE\OMEPRAZOLE\OMEPRAZOLE MAGNESIUM
     Indication: Product used for unknown indication
     Dosage: 40 MILLIGRAM, ONCE A DAY
     Route: 065
     Dates: start: 2005
  19. OMEPRAZOLE [Concomitant]
     Active Substance: DONEPEZIL HYDROCHLORIDE\OMEPRAZOLE\OMEPRAZOLE MAGNESIUM
     Dosage: 20 MILLIGRAM, ONCE A DAY
     Route: 065
     Dates: start: 20211104, end: 20211119
  20. OMEPRAZOLE [Concomitant]
     Active Substance: DONEPEZIL HYDROCHLORIDE\OMEPRAZOLE\OMEPRAZOLE MAGNESIUM
     Dosage: 100 MILLIGRAM, ONCE A DAY
     Route: 065
     Dates: start: 20211120, end: 20211121
  21. OMEPRAZOLE [Concomitant]
     Active Substance: DONEPEZIL HYDROCHLORIDE\OMEPRAZOLE\OMEPRAZOLE MAGNESIUM
     Dosage: 40 MILLIGRAM
     Route: 065
     Dates: start: 20211122, end: 20211125
  22. OMEPRAZOLE [Concomitant]
     Active Substance: DONEPEZIL HYDROCHLORIDE\OMEPRAZOLE\OMEPRAZOLE MAGNESIUM
     Dosage: 40 MILLIGRAM, ONCE A DAY
     Route: 065
     Dates: start: 20211126, end: 20211201
  23. QUETIAPINE [Concomitant]
     Active Substance: QUETIAPINE
     Indication: Prophylaxis
     Dosage: 25 MILLIGRAM, ONCE A DAY
     Route: 065
     Dates: start: 20211114, end: 20211129
  24. RAMIPRIL [Concomitant]
     Active Substance: RAMIPRIL
     Indication: Hypertension
     Dosage: 5 MILLIGRAM, ONCE A DAY
     Route: 065
     Dates: start: 2017
  25. SIMVASTATIN [Concomitant]
     Active Substance: SIMVASTATIN
     Indication: Hypercholesterolaemia
     Dosage: 20 MILLIGRAM, ONCE A DAY
     Route: 065
     Dates: start: 2005
  26. TOUJEO [Concomitant]
     Active Substance: INSULIN GLARGINE
     Indication: Diabetes mellitus
     Dosage: 16 INTERNATIONAL UNIT, ONCE A DAY
     Route: 065
     Dates: start: 20211104, end: 20211114
  27. TOUJEO [Concomitant]
     Active Substance: INSULIN GLARGINE
     Dosage: 12 INTERNATIONAL UNIT, ONCE A DAY
     Route: 065
     Dates: start: 20211123, end: 20211201

REACTIONS (1)
  - Interstitial lung disease [Fatal]

NARRATIVE: CASE EVENT DATE: 20211104
